FAERS Safety Report 16104987 (Version 3)
Quarter: 2019Q2

REPORT INFORMATION
  Report Type: Report from Study
  Country: US (occurrence: US)
  Receive Date: 20190322
  Receipt Date: 20190626
  Transmission Date: 20190711
  Serious: Yes (Death, Other)
  Sender: FDA-Public Use
  Company Number: US-REGENERON PHARMACEUTICALS, INC.-2019-22769

PATIENT

DRUGS (7)
  1. EYLEA [Suspect]
     Active Substance: AFLIBERCEPT
     Dosage: 2 UNITS, Q6W, OS
     Route: 031
     Dates: start: 20180615, end: 20180615
  2. EYLEA [Suspect]
     Active Substance: AFLIBERCEPT
     Indication: RETINAL VEIN OCCLUSION
     Dosage: 2 UNITS, Q6W, OS
     Route: 031
     Dates: start: 20180319, end: 20181210
  3. EYLEA [Suspect]
     Active Substance: AFLIBERCEPT
     Dosage: 2 UNITS, Q6W, OS
     Route: 031
     Dates: start: 20180905, end: 20180905
  4. EYLEA [Suspect]
     Active Substance: AFLIBERCEPT
     Indication: MACULAR OEDEMA
     Dosage: 2 UNITS, Q6W, OS
     Route: 031
     Dates: start: 20180430, end: 20180430
  5. EYLEA [Suspect]
     Active Substance: AFLIBERCEPT
     Dosage: 2 UNITS, Q6W, OS
     Route: 031
     Dates: start: 20181210, end: 20181210
  6. EYLEA [Suspect]
     Active Substance: AFLIBERCEPT
     Dosage: 2 UNITS, Q6W, OS
     Route: 031
     Dates: start: 20180723, end: 20180723
  7. EYLEA [Suspect]
     Active Substance: AFLIBERCEPT
     Dosage: 2 UNITS, Q6W, OS
     Route: 031
     Dates: start: 20181019, end: 20181019

REACTIONS (1)
  - Death [Fatal]

NARRATIVE: CASE EVENT DATE: 20190307
